FAERS Safety Report 4645064-5 (Version None)
Quarter: 2005Q2

REPORT INFORMATION
  Report Type: 
  Country: None (occurrence: None)
  Receive Date: 20050422
  Receipt Date: 20050419
  Transmission Date: 20051028
  Serious: Yes (Hospitalization, Other)
  Sender: FDA-Public Use
  Company Number: 2005-04-0864

PATIENT
  Age: 26 Year
  Sex: Male

DRUGS (2)
  1. TEMODAR [Suspect]
     Dosage: SEE IMAGE
     Route: 048
     Dates: start: 20040801
  2. RADIATION  THERAPY [Concomitant]

REACTIONS (2)
  - FEBRILE NEUTROPENIA [None]
  - PANCYTOPENIA [None]
